FAERS Safety Report 6304228-5 (Version None)
Quarter: 2009Q3

REPORT INFORMATION
  Report Type: 
  Country: None (occurrence: None)
  Receive Date: 20090811
  Receipt Date: 20090730
  Transmission Date: 20100115
  Serious: Yes (Hospitalization)
  Sender: FDA-Public Use
  Company Number: CA-JNJFOC-20090709975

PATIENT
  Sex: Male
  Weight: 79.6 kg

DRUGS (5)
  1. REMICADE [Suspect]
     Indication: CROHN'S DISEASE
     Dosage: 9 DOSES TOTAL
     Route: 042
  2. PREDNISONE [Concomitant]
  3. PREDNISONE [Concomitant]
  4. PREDNISONE [Concomitant]
  5. TYLENOL (CAPLET) [Concomitant]
     Indication: PREMEDICATION

REACTIONS (1)
  - ADRENOCORTICAL INSUFFICIENCY ACUTE [None]
